FAERS Safety Report 20852845 (Version 2)
Quarter: 2022Q2

REPORT INFORMATION
  Report Type: Spontaneous
  Country: US (occurrence: US)
  Receive Date: 20220520
  Receipt Date: 20220530
  Transmission Date: 20220721
  Serious: No
  Sender: FDA-Public Use
  Company Number: US-GLAXOSMITHKLINE-US2022078153

PATIENT
  Age: 53 Year
  Sex: Female

DRUGS (1)
  1. ZEJULA [Suspect]
     Active Substance: NIRAPARIB
     Indication: Ovarian cancer
     Dosage: 200 MG, QD (QPM)
     Dates: start: 20220502

REACTIONS (14)
  - Blood pressure increased [Unknown]
  - Oral mucosal blistering [Unknown]
  - Dizziness [Unknown]
  - Muscular weakness [Unknown]
  - Vision blurred [Unknown]
  - Catheter removal [Unknown]
  - Headache [Unknown]
  - Head discomfort [Unknown]
  - Limb discomfort [Unknown]
  - Tenderness [Unknown]
  - Arthralgia [Unknown]
  - Bone pain [Unknown]
  - Spinal pain [Unknown]
  - Product dose omission issue [Unknown]

NARRATIVE: CASE EVENT DATE: 20220501
